FAERS Safety Report 14330500 (Version 1)
Quarter: 2017Q4

REPORT INFORMATION
  Report Type: Other
  Country: FR (occurrence: FR)
  Receive Date: 20171227
  Receipt Date: 20171227
  Transmission Date: 20180321
  Serious: Yes (Other)
  Sender: FDA-Public Use
  Company Number: FR-RARE DISEASE THERAPEUTICS, INC.-2037839

PATIENT
  Age: 13 Year
  Sex: Female

DRUGS (13)
  1. LACTULOSE. [Concomitant]
     Active Substance: LACTULOSE
  2. ONDANSETRON [Suspect]
     Active Substance: ONDANSETRON
  3. ESOMEPRAZOLE [Concomitant]
     Active Substance: ESOMEPRAZOLE
  4. PARACETAMOL [Concomitant]
     Active Substance: ACETAMINOPHEN
  5. SULFAMETHOXAZOLE [Concomitant]
     Active Substance: SULFAMETHOXAZOLE
  6. PURIXAN [Suspect]
     Active Substance: MERCAPTOPURINE
     Indication: ACUTE LYMPHOCYTIC LEUKAEMIA
     Route: 048
     Dates: start: 20170403
  7. PEGASPARGASE [Suspect]
     Active Substance: PEGASPARGASE
     Route: 042
     Dates: start: 20170311, end: 20170311
  8. HUMAN IMMUNOGLOBULIN [Concomitant]
     Active Substance: HUMAN IMMUNOGLOBULIN G
  9. VALACYCLOVIR [Concomitant]
     Active Substance: VALACYCLOVIR HYDROCHLORIDE
  10. ALIZAPRIDE [Concomitant]
     Active Substance: ALIZAPRIDE
  11. RASBURICASE [Concomitant]
     Active Substance: RASBURICASE
  12. HYDROXYZINE [Concomitant]
     Active Substance: HYDROXYZINE HYDROCHLORIDE
  13. NOMEGESTROL ACETATE [Concomitant]
     Active Substance: NOMEGESTROL ACETATE

REACTIONS (3)
  - Alanine aminotransferase increased [Recovering/Resolving]
  - Gamma-glutamyltransferase increased [Recovering/Resolving]
  - Blood triglycerides increased [Recovering/Resolving]

NARRATIVE: CASE EVENT DATE: 20170407
